FAERS Safety Report 9546937 (Version 1)
Quarter: 2013Q2

REPORT INFORMATION
  Report Type: Spontaneous
  Country: US (occurrence: None)
  Receive Date: 20130524
  Receipt Date: 20130524
  Transmission Date: 20140414
  Serious: No
  Sender: FDA-Public Use
  Company Number: PHEH2012US024643

PATIENT
  Age: 36 Year
  Sex: Male
  Weight: 64.4 kg

DRUGS (7)
  1. GILENYA (FINGOLIMOD) CAPSULE, 0.5MG [Suspect]
     Indication: MULTIPLE SCLEROSIS
     Route: 048
     Dates: start: 20121211
  2. GABAPENTIN (GABAPENTIN)? [Concomitant]
  3. CYMBLATA (DULOXETINE HYDROCHLORIDE) [Concomitant]
  4. BACLOFEN (BACLOFEN) [Concomitant]
  5. ADDERALL XR (AMFETAMINE ASPARTATE, AMFETAMINE SULFATE, DEXAMFETAMINE SACCHARATE, DEXAMFETAMINE SULFATE) ONGOING [Concomitant]
  6. AMANTIDINE (AMANTADINE) ONGOING [Concomitant]
  7. AMPYRA (FAMPRIDINE) TABLET, 10MG [Concomitant]

REACTIONS (2)
  - Fatigue [None]
  - Dizziness [None]
